FAERS Safety Report 4484767-2 (Version None)
Quarter: 2004Q3

REPORT INFORMATION
  Report Type: 
  Country: None (occurrence: None)
  Receive Date: 20040921
  Receipt Date: 20031119
  Transmission Date: 20050211
  Serious: Yes (Hospitalization)
  Sender: FDA-Public Use
  Company Number: 163-20785-03110463(0)

PATIENT
  Age: 48 Year
  Sex: Male

DRUGS (12)
  1. THALOMID [Suspect]
     Indication: MULTIPLE MYELOMA
     Dosage: 200 MG, DAILY, ORAL
     Route: 048
     Dates: start: 20020426
  2. THALOMID [Suspect]
     Indication: MULTIPLE MYELOMA
     Dosage: 200 MG, DAILY, ORAL
     Route: 048
     Dates: start: 20030326
  3. DEXAMETHASONE [Suspect]
     Indication: MULTIPLE MYELOMA
     Dosage: 40 MG, DAILY, ORAL
     Route: 048
     Dates: start: 20030421, end: 20030424
  4. DEXAMETHASONE [Suspect]
     Indication: MULTIPLE MYELOMA
     Dosage: 40 MG, DAILY, ORAL
     Route: 048
     Dates: start: 20030101
  5. CISPLATIN [Suspect]
     Indication: MULTIPLE MYELOMA
     Dosage: 8 MG, DAILY, INTRAVENOUS
     Route: 042
     Dates: start: 20030421, end: 20030424
  6. CISPLATIN [Suspect]
     Indication: MULTIPLE MYELOMA
     Dosage: 8 MG, DAILY, INTRAVENOUS
     Route: 042
     Dates: start: 20030101
  7. ADRIAMYCIN PFS [Suspect]
     Indication: MULTIPLE MYELOMA
     Dosage: 8 MG, DAILY, INTRAVENOUS
     Route: 042
     Dates: start: 20030101, end: 20030101
  8. ADRIAMYCIN PFS [Suspect]
     Indication: MULTIPLE MYELOMA
     Dosage: 8 MG, DAILY, INTRAVENOUS
     Route: 042
     Dates: start: 20030421, end: 20030424
  9. CYCLOPHOSPHAMIDE [Suspect]
     Indication: MULTIPLE MYELOMA
     Dosage: DAILY INTRAVENOUS
     Route: 042
     Dates: start: 20030101, end: 20030101
  10. CYCLOPHOSPHAMIDE [Suspect]
     Indication: MULTIPLE MYELOMA
     Dosage: DAILY INTRAVENOUS
     Route: 042
     Dates: start: 20030421, end: 20030424
  11. ETOPOSIDE [Suspect]
     Indication: MULTIPLE MYELOMA
     Dosage: 34 MG, DAILY, INTRAVENOUS
     Route: 042
     Dates: start: 20030101, end: 20030101
  12. ETOPOSIDE [Suspect]
     Indication: MULTIPLE MYELOMA
     Dosage: 34 MG, DAILY, INTRAVENOUS
     Route: 042
     Dates: start: 20030421, end: 20030424

REACTIONS (3)
  - CHILLS [None]
  - HAEMATURIA [None]
  - PYREXIA [None]
